FAERS Safety Report 21387357 (Version 1)
Quarter: 2022Q3

REPORT INFORMATION
  Report Type: Spontaneous
  Country: JP (occurrence: JP)
  Receive Date: 20220928
  Receipt Date: 20220928
  Transmission Date: 20221027
  Serious: Yes (Other)
  Sender: FDA-Public Use
  Company Number: JP-TAIHO-TT220226_P_1

PATIENT
  Sex: Male
  Weight: 80 kg

DRUGS (3)
  1. LONSURF [Suspect]
     Active Substance: TIPIRACIL HYDROCHLORIDE\TRIFLURIDINE
     Indication: Rectal cancer metastatic
     Dosage: DOSE NOT REPORTED, ON DAYS 1-5 AND 15-19
     Route: 048
  2. LONSURF [Suspect]
     Active Substance: TIPIRACIL HYDROCHLORIDE\TRIFLURIDINE
     Dosage: DOSE NOT REPORTED, AT A REDUCED DOSE, ON DAYS 1-5 AND 15-19
     Route: 048
  3. AVASTIN [Concomitant]
     Active Substance: BEVACIZUMAB
     Indication: Rectal cancer metastatic
     Dosage: DETAILS NOT REPORTED
     Route: 041

REACTIONS (4)
  - Tumour haemorrhage [Unknown]
  - Orchitis [Recovered/Resolved]
  - Platelet count decreased [Recovered/Resolved]
  - Weight decreased [Unknown]
